FAERS Safety Report 17898609 (Version 2)
Quarter: 2020Q2

REPORT INFORMATION
  Report Type: Spontaneous
  Country: FR (occurrence: FR)
  Receive Date: 20200615
  Receipt Date: 20200616
  Transmission Date: 20200714
  Serious: Yes (Other)
  Sender: FDA-Public Use
  Company Number: FR-JNJFOC-20200607883

PATIENT
  Age: 88 Year
  Sex: Male

DRUGS (9)
  1. ENANTONE LP [Concomitant]
     Active Substance: LEUPROLIDE ACETATE
     Indication: CARDIOVASCULAR DISORDER
  2. APROVEL [Concomitant]
     Active Substance: IRBESARTAN
     Indication: CARDIOVASCULAR DISORDER
  3. BUDESONIDE. [Concomitant]
     Active Substance: BUDESONIDE
     Indication: CARDIOVASCULAR DISORDER
  4. MOPRAL                             /00661201/ [Concomitant]
     Active Substance: OMEPRAZOLE SODIUM
     Indication: CARDIOVASCULAR DISORDER
  5. DAFALGAN [Concomitant]
     Active Substance: ACETAMINOPHEN
     Indication: CARDIOVASCULAR DISORDER
  6. DECTANCYL [Concomitant]
     Active Substance: DEXAMETHASONE
     Indication: CARDIOVASCULAR DISORDER
  7. AMLOR [Concomitant]
     Active Substance: AMLODIPINE BESYLATE
     Indication: CARDIOVASCULAR DISORDER
  8. LEXOMIL [Concomitant]
     Active Substance: BROMAZEPAM
     Indication: CARDIOVASCULAR DISORDER
  9. ZYTIGA [Suspect]
     Active Substance: ABIRATERONE ACETATE
     Indication: PROSTATE CANCER
     Route: 048

REACTIONS (4)
  - Off label use [Unknown]
  - Skin haemorrhage [Unknown]
  - Contusion [Unknown]
  - Product use issue [Unknown]
